FAERS Safety Report 5188110-5 (Version None)
Quarter: 2006Q4

REPORT INFORMATION
  Report Type: 
  Country: None (occurrence: None)
  Receive Date: 20061221
  Receipt Date: 20061215
  Transmission Date: 20070319
  Serious: Yes (Disabling, Other)
  Sender: FDA-Public Use
  Company Number: GB-MERCK-0612GBR00087

PATIENT
  Age: 59 Year
  Sex: Female
  Weight: 130 kg

DRUGS (6)
  1. ZOCOR [Suspect]
     Route: 048
     Dates: end: 20061103
  2. ACETAMINOPHEN AND CODEINE PHOSPHATE [Concomitant]
     Indication: PAIN
     Route: 048
     Dates: start: 19970221
  3. DICLOFENAC [Concomitant]
     Route: 048
     Dates: start: 19961105
  4. ALLOPURINOL [Concomitant]
     Indication: GOUT
     Route: 048
     Dates: start: 19950928
  5. LANSOPRAZOLE [Concomitant]
     Indication: GASTROOESOPHAGEAL REFLUX DISEASE
     Route: 048
     Dates: start: 20020621
  6. MISOPROSTOL [Concomitant]
     Route: 065

REACTIONS (3)
  - CONTUSION [None]
  - PAIN IN EXTREMITY [None]
  - RHABDOMYOLYSIS [None]
